FAERS Safety Report 17005188 (Version 1)
Quarter: 2019Q4

REPORT INFORMATION
  Report Type: Spontaneous
  Country: US (occurrence: US)
  Receive Date: 20190925
  Receipt Date: 20190925
  Transmission Date: 20200122
  Serious: No
  Sender: FDA-Public Use
  Company Number: None

PATIENT
  Age: 40 Year
  Sex: Female
  Weight: 58.97 kg

DRUGS (3)
  1. KETOROLAC OPHTHALMIC SOLUTION [Suspect]
     Active Substance: KETOROLAC TROMETHAMINE
     Indication: ERYTHEMA
     Route: 047
     Dates: start: 201805, end: 20180610
  2. KETOROLAC OPHTHALMIC SOLUTION [Suspect]
     Active Substance: KETOROLAC TROMETHAMINE
     Indication: INFLAMMATION
     Route: 047
     Dates: start: 201805, end: 20180610
  3. KETOROLAC OPHTHALMIC SOLUTION [Suspect]
     Active Substance: KETOROLAC TROMETHAMINE
     Indication: PAIN
     Route: 047
     Dates: start: 201805, end: 20180610

REACTIONS (4)
  - Product substitution issue [None]
  - Dyspnoea [None]
  - Lacrimation increased [None]
  - Instillation site pain [None]

NARRATIVE: CASE EVENT DATE: 20180504
